FAERS Safety Report 8818552 (Version 1)
Quarter: 2012Q4

REPORT INFORMATION
  Report Type: Spontaneous
  Country: US (occurrence: None)
  Receive Date: 20121002
  Receipt Date: 20121002
  Transmission Date: 20130627
  Serious: Yes (Hospitalization, Other)
  Sender: FDA-Public Use
  Company Number: 2012MA011546

PATIENT
  Age: 27 Year
  Sex: Female

DRUGS (1)
  1. VERAPAMIL HYDROCHLORIDE [Suspect]
     Indication: VASOSPASM
     Route: 013

REACTIONS (5)
  - Headache [None]
  - Agitation [None]
  - Grand mal convulsion [None]
  - Hemiparesis [None]
  - Vasospasm [None]
